FAERS Safety Report 19188398 (Version 1)
Quarter: 2021Q2

REPORT INFORMATION
  Report Type: Other
  Country: US (occurrence: US)
  Receive Date: 20210427
  Receipt Date: 20210427
  Transmission Date: 20210717
  Serious: Yes (Other)
  Sender: FDA-Public Use
  Company Number: US-ROCHE-2812809

PATIENT
  Sex: Male

DRUGS (2)
  1. XELODA [Suspect]
     Active Substance: CAPECITABINE
     Indication: COLON CANCER
     Dosage: TAKE 1 TABLET BY MOUTH TWICE A DAY 2 WEEK(S) ON, 1 WEEK(S) OFF (TAKE WITH 500MG FOR TOTAL OF 2150MG
     Route: 048
  2. XELODA [Suspect]
     Active Substance: CAPECITABINE
     Indication: COLORECTAL CANCER METASTATIC
     Dosage: TAKE 4 TABLET(S) BY MOUTH TWICE A DAY 2 WEEK(S) ON
     Route: 048

REACTIONS (1)
  - Diabetes mellitus [Unknown]
